FAERS Safety Report 6900317 (Version 7)
Quarter: 2012Q4

REPORT INFORMATION
  Report Type: 
  Country: US (occurrence: US)
  Receive Date: 20090204
  Receipt Date: 20121210
  Transmission Date: 20130627
  Serious: Yes (Hospitalization)
  Sender: FDA-Public Use
  Company Number: US-BIOGENIDEC-2009BI002942

PATIENT
  Age: 35 Year
  Sex: Male
  Weight: 77 kg

DRUGS (3)
  1. AVONEX [Suspect]
     Indication: MULTIPLE SCLEROSIS
     Route: 030
     Dates: start: 20020102, end: 2005
  2. AVONEX [Suspect]
     Indication: MULTIPLE SCLEROSIS
     Route: 030
     Dates: start: 2005, end: 2010
  3. AVONEX [Suspect]
     Indication: MULTIPLE SCLEROSIS
     Route: 030
     Dates: start: 2010

REACTIONS (24)
  - Cholecystitis [Recovered/Resolved]
  - Gallbladder disorder [Recovered/Resolved]
  - Procedural pain [Recovered/Resolved]
  - Urinary retention postoperative [Recovered/Resolved]
  - Hypoaesthesia [Recovered/Resolved]
  - Gastrooesophageal reflux disease [Recovered/Resolved]
  - Prostatomegaly [Unknown]
  - Nasopharyngitis [Unknown]
  - Asthma [Not Recovered/Not Resolved]
  - Pollakiuria [Unknown]
  - Speech disorder [Unknown]
  - Weight decreased [Unknown]
  - Urinary retention [Unknown]
  - Memory impairment [Unknown]
  - Balance disorder [Recovered/Resolved]
  - Dyspepsia [Unknown]
  - Food allergy [Not Recovered/Not Resolved]
  - Urinary incontinence [Unknown]
  - Multiple sclerosis relapse [Recovered/Resolved]
  - Mood swings [Unknown]
  - Influenza like illness [Unknown]
  - Malaise [Unknown]
  - Fatigue [Unknown]
  - Diarrhoea [Recovered/Resolved]
